FAERS Safety Report 9424377 (Version 1)
Quarter: 2013Q3

REPORT INFORMATION
  Report Type: Spontaneous
  Country: US (occurrence: US)
  Receive Date: 20130729
  Receipt Date: 20130729
  Transmission Date: 20140515
  Serious: No
  Sender: FDA-Public Use
  Company Number: US-BAYER-2013-090127

PATIENT
  Sex: Female

DRUGS (2)
  1. FINACEA [Suspect]
     Indication: ROSACEA
     Dosage: UNK UNK, BID
     Route: 061
     Dates: start: 20130706
  2. FINACEA [Suspect]
     Indication: ROSACEA
     Dosage: UNK, QD
     Route: 061

REACTIONS (3)
  - Erythema [None]
  - Pruritus [None]
  - Skin irritation [None]
